FAERS Safety Report 5988216-4 (Version None)
Quarter: 2008Q4

REPORT INFORMATION
  Report Type: 
  Country: None (occurrence: None)
  Receive Date: 20081204
  Receipt Date: 20081121
  Transmission Date: 20090506
  Serious: Yes (Other)
  Sender: FDA-Public Use
  Company Number: 2008-186897-NL

PATIENT
  Age: 29 Year
  Sex: Female
  Weight: 94.8 kg

DRUGS (1)
  1. IMPLANON [Suspect]
     Indication: CONTRACEPTION
     Dosage: SUBDERMAL
     Route: 059
     Dates: start: 20080926, end: 20081008

REACTIONS (4)
  - IMPLANT SITE INFECTION [None]
  - IMPLANT SITE NECROSIS [None]
  - IMPLANT SITE PAIN [None]
  - STAPHYLOCOCCAL INFECTION [None]
